FAERS Safety Report 9360912 (Version 1)
Quarter: 2013Q2

REPORT INFORMATION
  Report Type: Spontaneous
  Country: GB (occurrence: GB)
  Receive Date: 20130621
  Receipt Date: 20130621
  Transmission Date: 20140414
  Serious: Yes (Life-Threatening)
  Sender: FDA-Public Use
  Company Number: PHHY2013GB062761

PATIENT
  Age: 68 Year
  Sex: Female
  Weight: 68 kg

DRUGS (7)
  1. CEFUROXIME [Suspect]
     Indication: ANTIBIOTIC PROPHYLAXIS
     Dosage: 1.5 G, UNK
     Route: 042
     Dates: start: 20130530, end: 20130530
  2. CHLORHEXIDINE GLUCONATE [Suspect]
     Dosage: 10 SPRAYS
     Route: 061
     Dates: start: 20130530, end: 20130530
  3. MEBEVERINE [Concomitant]
     Dosage: 135 MG, UNK
     Route: 048
  4. MIDAZOLAM [Concomitant]
     Indication: INDUCTION OF ANAESTHESIA
     Dosage: 2 MG, UNK
     Route: 042
     Dates: start: 20130530, end: 20130530
  5. FENTANYL [Concomitant]
     Indication: INDUCTION OF ANAESTHESIA
     Dosage: 100 UG, UNK
     Route: 042
     Dates: start: 20130530, end: 20130530
  6. ONDANSETRON [Concomitant]
     Indication: INDUCTION OF ANAESTHESIA
     Dosage: 4 MG, UNK
     Route: 042
     Dates: start: 20130530, end: 20130530
  7. DEXAMETHASONE [Concomitant]
     Indication: INDUCTION OF ANAESTHESIA
     Dosage: 6.6 MG, UNK
     Route: 042
     Dates: start: 20130530, end: 20130530

REACTIONS (2)
  - Blood blister [Recovering/Resolving]
  - Blood pressure abnormal [Recovering/Resolving]
